FAERS Safety Report 8536955-3 (Version None)
Quarter: 2012Q3

REPORT INFORMATION
  Report Type: 
  Country: None (occurrence: None)
  Receive Date: 20120725
  Receipt Date: 20120712
  Transmission Date: 20120928
  Serious: Yes (Other)
  Sender: FDA-Public Use
  Company Number: BE-GILEAD-2012-0057945

PATIENT
  Sex: Male

DRUGS (8)
  1. VISTIDE [Suspect]
     Indication: CYTOMEGALOVIRUS INFECTION
     Dosage: UNK
     Route: 042
     Dates: start: 20111101, end: 20120401
  2. ARANESP [Suspect]
     Indication: ACUTE MYELOID LEUKAEMIA
     Dosage: 500 UNKNOWN, Q3WK
     Route: 058
     Dates: start: 20111201, end: 20120401
  3. MEDROL [Concomitant]
     Indication: PRODUCT USED FOR UNKNOWN INDICATION
  4. PROBENECID [Suspect]
     Indication: NEPHROPATHY TOXIC
     Dosage: UNK
     Dates: start: 20111101, end: 20120401
  5. SOLIAN [Concomitant]
     Indication: PRODUCT USED FOR UNKNOWN INDICATION
  6. MABTHERA [Concomitant]
     Indication: PRODUCT USED FOR UNKNOWN INDICATION
     Dosage: UNK
     Dates: start: 20120111
  7. OMEPRAZOLE [Concomitant]
     Indication: PRODUCT USED FOR UNKNOWN INDICATION
  8. NEORAL [Concomitant]
     Indication: PRODUCT USED FOR UNKNOWN INDICATION

REACTIONS (2)
  - MYELODYSPLASTIC SYNDROME [None]
  - THERAPEUTIC RESPONSE DECREASED [None]
